FAERS Safety Report 24605229 (Version 1)
Quarter: 2024Q4

REPORT INFORMATION
  Report Type: Spontaneous
  Country: US (occurrence: US)
  Receive Date: 20241111
  Receipt Date: 20241111
  Transmission Date: 20250115
  Serious: No
  Sender: TEVA
  Company Number: US-TEVA-VS-3257336

PATIENT
  Age: 68 Year
  Sex: Female
  Weight: 68.04 kg

DRUGS (2)
  1. AJOVY [Suspect]
     Active Substance: FREMANEZUMAB-VFRM
     Indication: Migraine
     Dosage: 225/1.5 MG/ML
     Route: 065
     Dates: start: 202401, end: 20240815
  2. AJOVY [Suspect]
     Active Substance: FREMANEZUMAB-VFRM

REACTIONS (12)
  - Injection site swelling [Unknown]
  - Injection site mass [Unknown]
  - Tooth infection [Unknown]
  - Migraine [Unknown]
  - Adverse reaction [Unknown]
  - Drug intolerance [Unknown]
  - Stomatitis [Unknown]
  - Inflammation [Unknown]
  - Product dose omission issue [Unknown]
  - Rash [Unknown]
  - Pruritus [Unknown]
  - Injection site erythema [Unknown]

NARRATIVE: CASE EVENT DATE: 20240101
